FAERS Safety Report 9103433 (Version 1)
Quarter: 2013Q1

REPORT INFORMATION
  Report Type: Report from Study
  Country: NO (occurrence: NO)
  Receive Date: 20130218
  Receipt Date: 20130218
  Transmission Date: 20140127
  Serious: Yes (Other)
  Sender: FDA-Public Use
  Company Number: NO-ROCHE-1185337

PATIENT
  Sex: 0

DRUGS (3)
  1. MYCOPHENOLATE MOFETIL [Suspect]
     Indication: PROPHYLAXIS AGAINST TRANSPLANT REJECTION
     Route: 065
  2. CICLOSPORIN [Suspect]
     Indication: IMMUNOSUPPRESSION
     Route: 065
  3. PREDNISOLONE [Suspect]
     Indication: PROPHYLAXIS AGAINST TRANSPLANT REJECTION
     Route: 065

REACTIONS (4)
  - Acute graft versus host disease [Unknown]
  - Obliterative bronchiolitis [Unknown]
  - Chronic graft versus host disease [Unknown]
  - Bacterial disease carrier [Unknown]
